FAERS Safety Report 5829840-9 (Version None)
Quarter: 2008Q3

REPORT INFORMATION
  Report Type: 
  Country: None (occurrence: None)
  Receive Date: 20080801
  Receipt Date: 20080723
  Transmission Date: 20090109
  Serious: Yes (Hospitalization)
  Sender: FDA-Public Use
  Company Number: GB-BAYER-200811981BNE

PATIENT
  Age: 43 Year
  Sex: Female
  Weight: 50 kg

DRUGS (7)
  1. SORAFENIB [Suspect]
     Indication: DRUG USE FOR UNKNOWN INDICATION
     Dosage: TOTAL DAILY DOSE: 800 MG
     Route: 048
     Dates: start: 20080207, end: 20080306
  2. SORAFENIB [Suspect]
     Dosage: TOTAL DAILY DOSE: 1200 MG
     Route: 048
     Dates: start: 20080307, end: 20080403
  3. SORAFENIB [Suspect]
     Dosage: TOTAL DAILY DOSE: 1600 MG
     Route: 048
     Dates: start: 20080404, end: 20080430
  4. SORAFENIB [Suspect]
     Dosage: TOTAL DAILY DOSE: 1600 MG
     Route: 048
     Dates: start: 20080501, end: 20080528
  5. SORAFENIB [Suspect]
     Dosage: TOTAL DAILY DOSE: 1600 MG
     Route: 048
     Dates: start: 20080529, end: 20080610
  6. SORAFENIB [Suspect]
     Dosage: TOTAL DAILY DOSE: 1600 MG
     Route: 048
     Dates: start: 20080612, end: 20080625
  7. SORAFENIB [Suspect]
     Dosage: TOTAL DAILY DOSE: 1600 MG
     Route: 048
     Dates: start: 20080626

REACTIONS (1)
  - HYPOCALCAEMIA [None]
